FAERS Safety Report 6626085-X (Version None)
Quarter: 2010Q1

REPORT INFORMATION
  Report Type: 
  Country: None (occurrence: None)
  Receive Date: 20100310
  Receipt Date: 20100304
  Transmission Date: 20100710
  Serious: Yes (Death)
  Sender: FDA-Public Use
  Company Number: A0849306A

PATIENT
  Sex: Male
  Weight: 80 kg

DRUGS (2)
  1. SERETIDE [Suspect]
     Indication: CHRONIC OBSTRUCTIVE PULMONARY DISEASE
     Route: 055
     Dates: start: 20080101
  2. EXELON [Concomitant]
     Dosage: 1CAP PER DAY
     Dates: start: 20060101

REACTIONS (1)
  - ACUTE RESPIRATORY FAILURE [None]
